FAERS Safety Report 10584065 (Version 1)
Quarter: 2014Q4

REPORT INFORMATION
  Report Type: Spontaneous
  Country: IT (occurrence: None)
  Receive Date: 20141112
  Receipt Date: 20141112
  Transmission Date: 20150529
  Serious: Yes (Hospitalization, Other)
  Sender: FDA-Public Use
  Company Number: IT-ZYDUS-005338

PATIENT
  Age: 36 Year
  Sex: Male

DRUGS (1)
  1. TOPIRAMATE (TOPIRAMATE) [Suspect]
     Active Substance: TOPIRAMATE
     Indication: EPILEPSY
     Dosage: 200.00-MG-1.0DAYS

REACTIONS (11)
  - Coma [None]
  - Oxygen saturation decreased [None]
  - Cerebellar ataxia [None]
  - Heat stroke [None]
  - Hyperkalaemia [None]
  - Muscle rigidity [None]
  - Blood pressure increased [None]
  - Platelet count decreased [None]
  - Cerebellar atrophy [None]
  - Metabolic acidosis [None]
  - Heart rate increased [None]
